FAERS Safety Report 10262726 (Version 2)
Quarter: 2014Q2

REPORT INFORMATION
  Report Type: Report from Study
  Country: US (occurrence: US)
  Receive Date: 20140626
  Receipt Date: 20140626
  Transmission Date: 20141212
  Serious: Yes (Other)
  Sender: FDA-Public Use
  Company Number: US-MYLANLABS-2013S1013293

PATIENT
  Age: 58 Year
  Sex: Male

DRUGS (9)
  1. CLOZAPINE TABLETS [Suspect]
     Route: 048
     Dates: start: 201202, end: 20130601
  2. ATENOLOL [Concomitant]
     Indication: BLOOD PRESSURE INCREASED
  3. VITAMIN B [Concomitant]
  4. DEPAKOTE [Concomitant]
  5. FUROSEMIDE [Concomitant]
  6. LORAZEPAM [Concomitant]
  7. NAMENDA [Concomitant]
  8. GEODON [Concomitant]
  9. DOXAZOSIN [Concomitant]

REACTIONS (1)
  - Granulocytopenia [Not Recovered/Not Resolved]
